FAERS Safety Report 10776608 (Version 1)
Quarter: 2015Q1

REPORT INFORMATION
  Report Type: Spontaneous
  Country: PL (occurrence: PL)
  Receive Date: 20150209
  Receipt Date: 20150209
  Transmission Date: 20150721
  Serious: Yes (Hospitalization)
  Sender: FDA-Public Use
  Company Number: CHPA2015PL001417

PATIENT
  Age: 65 Year
  Sex: Female

DRUGS (1)
  1. THERAFLU EXTRAGRIP [Suspect]
     Active Substance: ACETAMINOPHEN\DEXTROMETHORPHAN HYDROBROMIDE\PSEUDOEPHEDRINE HYDROCHLORIDE
     Indication: INFLUENZA
     Dosage: 2 DF QD
     Route: 048
     Dates: start: 20150126, end: 20150127

REACTIONS (6)
  - Pruritus [Recovering/Resolving]
  - Product use issue [Unknown]
  - Peripheral swelling [Unknown]
  - Erythema [Unknown]
  - Erysipelas [Unknown]
  - Herpes zoster [Unknown]

NARRATIVE: CASE EVENT DATE: 20150128
